FAERS Safety Report 17899725 (Version 1)
Quarter: 2020Q2

REPORT INFORMATION
  Report Type: Spontaneous
  Country: US (occurrence: US)
  Receive Date: 20200615
  Receipt Date: 20200615
  Transmission Date: 20200714
  Serious: Yes (Hospitalization, Disabling)
  Sender: FDA-Public Use
  Company Number: None

PATIENT
  Age: 52 Year
  Sex: Female
  Weight: 63.9 kg

DRUGS (7)
  1. NP THYROID [Suspect]
     Active Substance: LEVOTHYROXINE\LIOTHYRONINE
     Indication: MENOPAUSE
     Dosage: ?          QUANTITY:1 TABLET(S);?
     Route: 048
     Dates: start: 20190207, end: 20190530
  2. VALACYCLOVERE [Concomitant]
  3. AVONEX [Concomitant]
     Active Substance: INTERFERON BETA-1A
  4. VIT D [Concomitant]
     Active Substance: VITAMIN D NOS
  5. IRON [Concomitant]
     Active Substance: IRON
  6. VITAMIN B12 [Concomitant]
     Active Substance: CYANOCOBALAMIN
  7. NP THYROID [Suspect]
     Active Substance: LEVOTHYROXINE\LIOTHYRONINE
     Indication: HORMONE THERAPY
     Dosage: ?          QUANTITY:1 TABLET(S);?
     Route: 048
     Dates: start: 20190207, end: 20190530

REACTIONS (11)
  - Feeling jittery [None]
  - Hypoaesthesia [None]
  - Product measured potency issue [None]
  - Muscle tightness [None]
  - Recalled product administered [None]
  - Nausea [None]
  - Heart rate increased [None]
  - Syncope [None]
  - Paraesthesia [None]
  - Dizziness [None]
  - Muscular weakness [None]

NARRATIVE: CASE EVENT DATE: 20190301
